FAERS Safety Report 13182606 (Version 3)
Quarter: 2017Q1

REPORT INFORMATION
  Report Type: Spontaneous
  Country: US (occurrence: US)
  Receive Date: 20170203
  Receipt Date: 20170313
  Transmission Date: 20170428
  Serious: No
  Sender: FDA-Public Use
  Company Number: US-PFIZER INC-2017044780

PATIENT
  Age: 44 Year
  Sex: Female
  Weight: 82 kg

DRUGS (7)
  1. LYRICA [Suspect]
     Active Substance: PREGABALIN
     Indication: FIBROMYALGIA
     Dosage: 600 MG (200 MG AROUND 3:30PM, 400 MG AROUND 1AM), DAILY
     Route: 048
     Dates: start: 2011
  2. AMBIEN [Concomitant]
     Active Substance: ZOLPIDEM TARTRATE
     Indication: INSOMNIA
     Dosage: 10 MG, 1X/DAY (EVERY NIGHT)
     Dates: start: 2013
  3. FLEXERIL [Concomitant]
     Active Substance: CYCLOBENZAPRINE HYDROCHLORIDE
     Dosage: UNK, SOMETIMES ONLY TAKES IT TWICE A DAY
     Dates: start: 1998
  4. SYNTHROID [Concomitant]
     Active Substance: LEVOTHYROXINE SODIUM
     Indication: THYROID DISORDER
     Dosage: 125 MG, 1X/DAY
  5. INDERAL [Concomitant]
     Active Substance: PROPRANOLOL HYDROCHLORIDE
     Indication: SUPRAVENTRICULAR TACHYCARDIA
     Dosage: 60 MG, 1X/DAY
     Dates: start: 1988
  6. VITAMIN D3 [Concomitant]
     Active Substance: CHOLECALCIFEROL
     Indication: OSTEOPENIA
     Dosage: 15000 IU, WEEKLY
  7. PEPCID [Concomitant]
     Active Substance: FAMOTIDINE
     Indication: GASTRITIS
     Dosage: 20 MG, 1X/DAY

REACTIONS (7)
  - Bronchospasm [Recovered/Resolved]
  - Muscle spasms [Unknown]
  - Malaise [Unknown]
  - Bronchitis [Recovered/Resolved]
  - Overdose [Unknown]
  - Tonsillitis [Recovered/Resolved]
  - Asthma [Recovered/Resolved]

NARRATIVE: CASE EVENT DATE: 2011
